FAERS Safety Report 10328372 (Version 2)
Quarter: 2014Q4

REPORT INFORMATION
  Report Type: Spontaneous
  Country: US (occurrence: US)
  Receive Date: 20140721
  Receipt Date: 20141015
  Transmission Date: 20150528
  Serious: Yes (Death)
  Sender: FDA-Public Use
  Company Number: US-BEH-2014043868

PATIENT
  Age: 19 Year
  Sex: Male
  Weight: 70 kg

DRUGS (1)
  1. HIZENTRA [Suspect]
     Active Substance: HUMAN IMMUNOGLOBULIN G
     Indication: IMMUNODEFICIENCY COMMON VARIABLE
     Dosage: SINCE SEP-2010
     Route: 058

REACTIONS (4)
  - Tachycardia [Fatal]
  - Autoimmune haemolytic anaemia [Fatal]
  - Jaundice [Fatal]
  - Chromaturia [Fatal]

NARRATIVE: CASE EVENT DATE: 20140313
